FAERS Safety Report 4735865-7 (Version None)
Quarter: 2005Q3

REPORT INFORMATION
  Report Type: 
  Country: None (occurrence: None)
  Receive Date: 20050805
  Receipt Date: 20050728
  Transmission Date: 20060218
  Serious: Yes (Hospitalization)
  Sender: FDA-Public Use
  Company Number: US-JNJFOC-20050800370

PATIENT
  Sex: Male

DRUGS (1)
  1. DURAGESIC-100 [Suspect]
     Route: 062
     Dates: start: 20050501

REACTIONS (4)
  - CARDIAC ENZYMES INCREASED [None]
  - PAIN [None]
  - ROAD TRAFFIC ACCIDENT [None]
  - TRANSIENT ISCHAEMIC ATTACK [None]
